FAERS Safety Report 7753030-6 (Version None)
Quarter: 2011Q3

REPORT INFORMATION
  Report Type: 
  Country: None (occurrence: None)
  Receive Date: 20110915
  Receipt Date: 20110913
  Transmission Date: 20111222
  Serious: Yes (Death)
  Sender: FDA-Public Use
  Company Number: IE-PFIZER INC-2011215266

PATIENT
  Age: 68 Year
  Sex: Male

DRUGS (9)
  1. LIPITOR [Suspect]
     Dosage: UNK
  2. CLOPIDOGREL [Concomitant]
  3. PAROXETINE HYDROCHLORIDE [Concomitant]
  4. LANSOPRAZOLE [Concomitant]
  5. INSULIN [Concomitant]
  6. PREGABALIN [Concomitant]
  7. DIGOXIN [Suspect]
     Dosage: 125 UG, UNK
  8. FOSINOPRIL SODIUM [Concomitant]
  9. FENOFIBRATE [Concomitant]

REACTIONS (1)
  - DEATH [None]
